FAERS Safety Report 8985891 (Version 1)
Quarter: 2012Q4

REPORT INFORMATION
  Report Type: 
  Country: US (occurrence: US)
  Receive Date: 20121226
  Receipt Date: 20121226
  Transmission Date: 20130627
  Serious: Yes (Other)
  Sender: FDA-Public Use
  Company Number: US-PFIZER INC-2012325145

PATIENT
  Age: 82 Year
  Sex: Male
  Weight: 86 kg

DRUGS (6)
  1. LYRICA [Suspect]
     Indication: NEUROPATHY PERIPHERAL
     Dosage: 25 mg, 2x/day
     Dates: end: 2011
  2. LYRICA [Suspect]
     Dosage: UNK
     Dates: start: 20121218
  3. GLUCOTROL XL [Concomitant]
     Indication: DIABETES
     Dosage: 2.5 mg, daily
  4. TENORMIN [Concomitant]
     Dosage: 25 mg, 2x/day
  5. ALTACE [Concomitant]
     Dosage: 10 mg, daily
  6. LASIX [Concomitant]
     Dosage: 20 mg, daily

REACTIONS (2)
  - Cataract [Recovered/Resolved]
  - Vision blurred [Recovered/Resolved]
